FAERS Safety Report 26194920 (Version 1)
Quarter: 2025Q4

REPORT INFORMATION
  Report Type: Spontaneous
  Country: CN (occurrence: CN)
  Receive Date: 20251224
  Receipt Date: 20251224
  Transmission Date: 20260118
  Serious: Yes (Hospitalization, Other)
  Sender: CATALYST PHARMA
  Company Number: CN-CATALYSTPHARMACEUTICALPARTNERS-CN-CATA-25-01977

PATIENT

DRUGS (6)
  1. PERAMPANEL [Suspect]
     Active Substance: PERAMPANEL
     Indication: Epilepsy
     Dosage: 3 DOSAGE FORM, FREQUENCY UNKNOWN
     Route: 048
  2. PERAMPANEL [Suspect]
     Active Substance: PERAMPANEL
     Dosage: 6 DOSAGE FORM, FREQUENCY UNKNOWN
     Route: 048
     Dates: start: 20251011, end: 20251011
  3. PERAMPANEL [Suspect]
     Active Substance: PERAMPANEL
     Dosage: 3 DOSAGE FORM, FREQUENCY UNKNOWN
     Route: 048
     Dates: start: 20251013
  4. OXCARBAZEPINE [Suspect]
     Active Substance: OXCARBAZEPINE
     Indication: Epilepsy
     Dosage: 2.5 DOSAGE FORM, FREQUENCY UNKNOWN
     Route: 048
  5. OXCARBAZEPINE [Suspect]
     Active Substance: OXCARBAZEPINE
     Dosage: 5 DOSAGE FORM, FREQUENCY UNKNOWN
     Route: 048
     Dates: start: 20251011, end: 20251011
  6. OXCARBAZEPINE [Suspect]
     Active Substance: OXCARBAZEPINE
     Dosage: 2.5 DOSAGE FORM, FREQUENCY UNKNOWN
     Route: 048
     Dates: start: 20251013

REACTIONS (5)
  - Epilepsy [Recovering/Resolving]
  - Blood potassium decreased [Recovering/Resolving]
  - Asthenia [Recovering/Resolving]
  - Blood sodium decreased [Recovering/Resolving]
  - Accidental overdose [Recovering/Resolving]

NARRATIVE: CASE EVENT DATE: 20251011
